FAERS Safety Report 4627075-9 (Version None)
Quarter: 2005Q1

REPORT INFORMATION
  Report Type: 
  Country: None (occurrence: None)
  Receive Date: 20050331
  Receipt Date: 20050316
  Transmission Date: 20050727
  Serious: Yes (Hospitalization, Congenital Anomaly)
  Sender: FDA-Public Use
  Company Number: FR-2005-004089

PATIENT
  Sex: 0
  Weight: 1.7 kg

DRUGS (1)
  1. SOTALOL HCL [Suspect]
     Indication: HYPERTENSION
     Dosage: 160 MG/D, MATERNAL DOSE, TRANSPLACENTAL
     Route: 064
     Dates: start: 20030603, end: 20040128

REACTIONS (6)
  - CAESAREAN SECTION [None]
  - DRUG EXPOSURE DURING PREGNANCY [None]
  - FOETAL GROWTH RETARDATION [None]
  - NEONATAL DISORDER [None]
  - PREMATURE BABY [None]
  - RENAL AGENESIS [None]
